FAERS Safety Report 24991329 (Version 1)
Quarter: 2025Q1

REPORT INFORMATION
  Report Type: Spontaneous
  Country: GB (occurrence: GB)
  Receive Date: 20250220
  Receipt Date: 20250220
  Transmission Date: 20250409
  Serious: Yes (Life-Threatening, Hospitalization, Disabling, Other)
  Sender: TORRENT PHARMA INC.
  Company Number: None

PATIENT
  Age: 33 Year
  Sex: Female

DRUGS (1)
  1. OLANZAPINE [Suspect]
     Active Substance: OLANZAPINE
     Indication: Mental disorder
     Dosage: 12.5MG A DAY
     Route: 065
     Dates: start: 20120609, end: 20230831

REACTIONS (7)
  - Blood prolactin increased [Unknown]
  - Abnormal loss of weight [Unknown]
  - Intrusive thoughts [Unknown]
  - Mental disorder [Unknown]
  - Anxiety [Unknown]
  - Product prescribing error [Unknown]
  - Malaise [Unknown]
